FAERS Safety Report 8320038-1 (Version None)
Quarter: 2012Q2

REPORT INFORMATION
  Report Type: 
  Country: None (occurrence: None)
  Receive Date: 20120427
  Receipt Date: 20120425
  Transmission Date: 20120825
  Serious: Yes (Death)
  Sender: FDA-Public Use
  Company Number: TR-ABBOTT-12P-161-0928931-00

PATIENT
  Sex: Male
  Weight: 71 kg

DRUGS (6)
  1. PHOS-EX [Concomitant]
     Indication: RENAL FAILURE CHRONIC
     Dosage: 3 X 1
     Route: 048
     Dates: start: 20060601, end: 20120423
  2. ZEMPLAR [Suspect]
     Indication: HYPERPARATHYROIDISM
     Dosage: 5MCG X 3/WEEK
     Route: 042
     Dates: start: 20120103, end: 20120423
  3. VENOFER [Concomitant]
     Indication: RENAL FAILURE CHRONIC
     Dosage: 1 X 1/WEEK
     Route: 042
     Dates: start: 20111201, end: 20120423
  4. CARVEDILOL [Concomitant]
     Indication: RENAL FAILURE CHRONIC
     Dosage: 1 X 1
     Route: 048
     Dates: start: 20111001, end: 20120423
  5. CORASPIN [Concomitant]
     Indication: RENAL FAILURE CHRONIC
     Dosage: 1X1
     Route: 048
     Dates: start: 20111001, end: 20120423
  6. NEURONTIN [Concomitant]
     Indication: RENAL FAILURE CHRONIC
     Dosage: 300MG X 3
     Route: 048
     Dates: start: 20110701, end: 20120423

REACTIONS (2)
  - PERIPHERAL COLDNESS [None]
  - ARTERIAL OCCLUSIVE DISEASE [None]
